FAERS Safety Report 5733134-X (Version None)
Quarter: 2008Q2

REPORT INFORMATION
  Report Type: 
  Country: None (occurrence: None)
  Receive Date: 20080509
  Receipt Date: 20080429
  Transmission Date: 20081010
  Serious: Yes (Hospitalization, Other)
  Sender: FDA-Public Use
  Company Number: US-ROCHE-493713

PATIENT
  Sex: Male
  Weight: 68 kg

DRUGS (1)
  1. ACCUTANE [Suspect]
     Indication: ACNE
     Dosage: THE PATIENT WAS PRESCRIBED ACCUTANE 40 MG ON 19 AUG 2002
     Route: 065
     Dates: start: 20020819, end: 20030110

REACTIONS (9)
  - ANXIETY [None]
  - BACK PAIN [None]
  - CLOSTRIDIUM DIFFICILE COLITIS [None]
  - COLITIS [None]
  - CROHN'S DISEASE [None]
  - DEPRESSION [None]
  - HEADACHE [None]
  - INFLAMMATORY BOWEL DISEASE [None]
  - MICROCYTIC ANAEMIA [None]
